FAERS Safety Report 16579463 (Version 1)
Quarter: 2019Q3

REPORT INFORMATION
  Report Type: Spontaneous
  Country: NL (occurrence: FR)
  Receive Date: 20190716
  Receipt Date: 20190716
  Transmission Date: 20191004
  Serious: Yes (Life-Threatening, Hospitalization)
  Sender: FDA-Public Use
  Company Number: FR-FRESENIUS KABI-FK201907763

PATIENT
  Age: 76 Year
  Sex: Female
  Weight: 59.4 kg

DRUGS (9)
  1. CLAVULANATE POTASSIUM/AMOXICILLIN TRIHYDRATE [Suspect]
     Active Substance: AMOXICILLIN\CLAVULANATE POTASSIUM
     Indication: PROPHYLAXIS
     Route: 042
     Dates: start: 20190529, end: 20190529
  2. CIMETIDINE [Suspect]
     Active Substance: CIMETIDINE
     Indication: PREMEDICATION
     Route: 048
     Dates: start: 20190529, end: 20190529
  3. REMIFENTANIL HYDROCHLORIDE. [Suspect]
     Active Substance: REMIFENTANIL HYDROCHLORIDE
     Indication: ANAESTHESIA
     Route: 042
     Dates: start: 20190529, end: 20190529
  4. NO DRUG NAME [Suspect]
     Active Substance: UNSPECIFIED INGREDIENT
  5. ATRACURIUM BESILATE [Suspect]
     Active Substance: ATRACURIUM BESYLATE
     Indication: ANAESTHESIA
     Route: 042
     Dates: start: 20190529, end: 20190529
  6. PROPOFOL. [Concomitant]
     Active Substance: PROPOFOL
     Indication: ANAESTHESIA
     Route: 042
     Dates: start: 20190529, end: 20190529
  7. LIDOCAINE (MANUFACTURER UNKNOWN) [Suspect]
     Active Substance: LIDOCAINE
     Indication: ANAESTHESIA
     Route: 042
     Dates: start: 20190529, end: 20190529
  8. KETAMINE HYDROCHLORIDE. [Suspect]
     Active Substance: KETAMINE HYDROCHLORIDE
     Indication: PROCEDURAL PAIN
     Route: 042
     Dates: start: 20190529, end: 20190529
  9. ALPRAZOLAM. [Suspect]
     Active Substance: ALPRAZOLAM
     Indication: PREMEDICATION
     Route: 048
     Dates: start: 20190529, end: 20190529

REACTIONS (1)
  - Circulatory collapse [Recovered/Resolved]

NARRATIVE: CASE EVENT DATE: 20190529
